FAERS Safety Report 9392264 (Version 1)
Quarter: 2013Q3

REPORT INFORMATION
  Report Type: Spontaneous
  Country: US (occurrence: US)
  Receive Date: 20130710
  Receipt Date: 20130710
  Transmission Date: 20140515
  Serious: No
  Sender: FDA-Public Use
  Company Number: US-009507513-1306USA011834

PATIENT
  Sex: Male

DRUGS (2)
  1. NASONEX [Suspect]
     Dosage: 2 SPRAYS IN EACH NOSTRIL ONCE A DAY
     Route: 045
     Dates: start: 1991
  2. NASONEX [Suspect]
     Dosage: 1 SPRAY IN EACH NOSTRIL
     Route: 045

REACTIONS (4)
  - Drug dose omission [Unknown]
  - Product quality issue [Unknown]
  - No adverse event [Unknown]
  - Underdose [Unknown]
